FAERS Safety Report 7017746-1 (Version None)
Quarter: 2010Q3

REPORT INFORMATION
  Report Type: 
  Country: None (occurrence: None)
  Receive Date: 20100928
  Receipt Date: 20100923
  Transmission Date: 20110219
  Serious: Yes (Hospitalization)
  Sender: FDA-Public Use
  Company Number: FR-SANOFI-AVENTIS-2010SA057272

PATIENT
  Age: 33 Year
  Sex: Female

DRUGS (5)
  1. RIFAMATE [Suspect]
     Indication: TUBERCULIN TEST
     Route: 048
  2. RIFAMATE [Suspect]
  3. HYDROXYCHLOROQUINE [Concomitant]
     Indication: SYSTEMIC LUPUS ERYTHEMATOSUS
     Route: 048
  4. HYDROXYCHLOROQUINE [Concomitant]
  5. AMOXICILLIN [Concomitant]
     Route: 065

REACTIONS (18)
  - ANAPHYLACTIC REACTION [None]
  - ARTHRALGIA [None]
  - ASTHENIA [None]
  - BACK PAIN [None]
  - CHILLS [None]
  - COUGH [None]
  - CSF CELL COUNT INCREASED [None]
  - CSF PROTEIN INCREASED [None]
  - CYTOLYTIC HEPATITIS [None]
  - DIARRHOEA [None]
  - DYSPNOEA [None]
  - FACE OEDEMA [None]
  - HEADACHE [None]
  - MENINGITIS ASEPTIC [None]
  - PRURITUS GENERALISED [None]
  - PYREXIA [None]
  - THROMBOCYTOPENIA [None]
  - VOMITING [None]
